FAERS Safety Report 7684260-X (Version None)
Quarter: 2011Q3

REPORT INFORMATION
  Report Type: 
  Country: None (occurrence: None)
  Receive Date: 20110815
  Receipt Date: 20110804
  Transmission Date: 20111222
  Serious: Yes (Death)
  Sender: FDA-Public Use
  Company Number: JP-CELGENEUS-087-50794-11080782

PATIENT
  Sex: Male

DRUGS (4)
  1. ITRACONAZOLE [Concomitant]
     Route: 065
  2. MAGNESIUM OXIDE [Concomitant]
     Route: 065
  3. BLOSTAR M [Concomitant]
     Route: 065
  4. VIDAZA [Suspect]
     Indication: MYELODYSPLASTIC SYNDROME
     Dosage: 130 MILLIGRAM/SQ. METER
     Route: 058
     Dates: start: 20110428, end: 20110504

REACTIONS (1)
  - PULMONARY HAEMORRHAGE [None]
